FAERS Safety Report 5226374-X (Version None)
Quarter: 2007Q1

REPORT INFORMATION
  Report Type: 
  Country: None (occurrence: None)
  Receive Date: 20070201
  Receipt Date: 20070124
  Transmission Date: 20070707
  Serious: Yes (Other)
  Sender: FDA-Public Use
  Company Number: CA-JNJFOC-20070106830

PATIENT
  Sex: Male
  Weight: 72.6 kg

DRUGS (3)
  1. RISPERDAL [Suspect]
     Indication: SCHIZOPHRENIA
  2. ATIVAN [Concomitant]
     Indication: PSYCHOTIC DISORDER
  3. CIPRALEX [Concomitant]
     Indication: PSYCHOTIC DISORDER

REACTIONS (1)
  - THROMBOCYTOPENIA [None]
